FAERS Safety Report 15566431 (Version 1)
Quarter: 2018Q4

REPORT INFORMATION
  Report Type: Spontaneous
  Country: US (occurrence: US)
  Receive Date: 20181025
  Receipt Date: 20181025
  Transmission Date: 20190205
  Serious: Yes (Death)
  Sender: FDA-Public Use
  Company Number: None

PATIENT
  Age: 68 Year
  Sex: Male

DRUGS (1)
  1. LUPRON DEPOT [Suspect]
     Active Substance: LEUPROLIDE ACETATE
     Indication: PROSTATE CANCER
     Dosage: 22.5 MG Q3M INTRAMUSCULAR
     Route: 030
     Dates: start: 20170207

REACTIONS (2)
  - Disease complication [None]
  - Prostate cancer [None]

NARRATIVE: CASE EVENT DATE: 20180902
